FAERS Safety Report 16860234 (Version 6)
Quarter: 2020Q1

REPORT INFORMATION
  Report Type: Spontaneous
  Country: CA (occurrence: CA)
  Receive Date: 20190927
  Receipt Date: 20200304
  Transmission Date: 20200409
  Serious: Yes (Hospitalization, Other)
  Sender: FDA-Public Use
  Company Number: CA-CELLTRION INC.-2019CA018817

PATIENT

DRUGS (4)
  1. INFLECTRA [Suspect]
     Active Substance: INFLIXIMAB-DYYB
     Dosage: 300 MG EVERY 8 WEEKS
     Route: 042
     Dates: start: 20191223, end: 20191223
  2. INFLECTRA [Suspect]
     Active Substance: INFLIXIMAB-DYYB
     Indication: CROHN^S DISEASE
     Dosage: 300 MG, 0, 2, 6 WEEKS, EVERY 8 WEEKS
     Route: 042
     Dates: start: 20181023, end: 20181023
  3. INFLECTRA [Suspect]
     Active Substance: INFLIXIMAB-DYYB
     Dosage: 300 MG, 0, 2, 6 WEEKS, EVERY 8 WEEKS
     Route: 042
     Dates: start: 20190925, end: 20190925
  4. INFLECTRA [Suspect]
     Active Substance: INFLIXIMAB-DYYB
     Dosage: 300 MG, 0, 2, 6 WEEKS, EVERY 8 WEEKS
     Route: 042
     Dates: start: 20190716, end: 20190716

REACTIONS (6)
  - Vaginal cyst [Unknown]
  - Product use issue [Unknown]
  - Off label use [Unknown]
  - Vaginal fistula [Unknown]
  - Infection [Not Recovered/Not Resolved]
  - Vaginal infection [Unknown]

NARRATIVE: CASE EVENT DATE: 20181023
